FAERS Safety Report 5248674-X (Version None)
Quarter: 2007Q1

REPORT INFORMATION
  Report Type: 
  Country: None (occurrence: None)
  Receive Date: 20070226
  Receipt Date: 20070226
  Transmission Date: 20070707
  Serious: Yes (Hospitalization)
  Sender: FDA-Public Use
  Company Number: None

PATIENT
  Age: 79 Year
  Sex: Male
  Weight: 74.8435 kg

DRUGS (1)
  1. ACTONEL [Suspect]
     Indication: BONE DENSITY DECREASED
     Dosage: 1 WEEKLY PO
     Route: 048
     Dates: start: 20060115, end: 20060325

REACTIONS (4)
  - DISEASE RECURRENCE [None]
  - OESOPHAGEAL DISORDER [None]
  - SPEECH DISORDER [None]
  - VOCAL CORD POLYP [None]
